APPROVED DRUG PRODUCT: FLUPHENAZINE HYDROCHLORIDE
Active Ingredient: FLUPHENAZINE HYDROCHLORIDE
Strength: 5MG
Dosage Form/Route: TABLET;ORAL
Application: A217094 | Product #003
Applicant: TORRENT PHARMACEUTICALS LTD
Approved: Jan 22, 2024 | RLD: No | RS: No | Type: DISCN